FAERS Safety Report 5867778-1 (Version None)
Quarter: 2008Q3

REPORT INFORMATION
  Report Type: 
  Country: None (occurrence: None)
  Receive Date: 20080902
  Receipt Date: 20080820
  Transmission Date: 20090109
  Serious: Yes (Other)
  Sender: FDA-Public Use
  Company Number: GB-ELI_LILLY_AND_COMPANY-GB200808003849

PATIENT
  Age: 28 Year
  Sex: Female
  Weight: 64 kg

DRUGS (4)
  1. CYMBALTA [Suspect]
     Indication: DEPRESSION
     Dosage: 60 MG, UNKNOWN
     Route: 048
     Dates: start: 20080802, end: 20080806
  2. CERAZETTE [Concomitant]
     Indication: CONTRACEPTION
     Dosage: 75 UG, UNKNOWN
     Route: 048
     Dates: start: 20050117
  3. MIRTAZAPINE [Concomitant]
     Indication: DEPRESSION
     Dosage: 45 MG, UNKNOWN
     Route: 048
     Dates: start: 20071218, end: 20080724
  4. TRIMETHOPRIM [Concomitant]
     Indication: URINARY TRACT INFECTION
     Dosage: 200 MG, 2/D
     Route: 048
     Dates: start: 20080711, end: 20080714

REACTIONS (4)
  - AGITATION [None]
  - DYSTONIA [None]
  - HALLUCINATION [None]
  - TREMOR [None]
